FAERS Safety Report 5654928-5 (Version None)
Quarter: 2008Q1

REPORT INFORMATION
  Report Type: 
  Country: None (occurrence: None)
  Receive Date: 20080307
  Receipt Date: 20070912
  Transmission Date: 20080703
  Serious: No
  Sender: FDA-Public Use
  Company Number: A0681454A

PATIENT
  Age: 62 Year
  Sex: Female

DRUGS (1)
  1. REQUIP [Suspect]
     Indication: PARKINSON'S DISEASE
     Dosage: 1.5MG THREE TIMES PER DAY
     Route: 048
     Dates: start: 20070814

REACTIONS (4)
  - FATIGUE [None]
  - HEADACHE [None]
  - NAUSEA [None]
  - TREMOR [None]
